FAERS Safety Report 19204536 (Version 1)
Quarter: 2021Q2

REPORT INFORMATION
  Report Type: Spontaneous
  Country: US (occurrence: US)
  Receive Date: 20210503
  Receipt Date: 20210503
  Transmission Date: 20210717
  Serious: No
  Sender: FDA-Public Use
  Company Number: US-ORGANON-O2104USA001872

PATIENT
  Age: 75 Year
  Sex: Male

DRUGS (3)
  1. GOCOVRI [Concomitant]
     Active Substance: AMANTADINE
     Dosage: UNK
  2. SINEMET [Suspect]
     Active Substance: CARBIDOPA\LEVODOPA
     Dosage: 250 (UNITS NOT REPORTED)
     Route: 048
  3. SINEMET [Suspect]
     Active Substance: CARBIDOPA\LEVODOPA
     Dosage: 150 (UNITS NOT REPORTED)UNK
     Route: 048

REACTIONS (2)
  - Tremor [Not Recovered/Not Resolved]
  - Nervousness [Recovering/Resolving]

NARRATIVE: CASE EVENT DATE: 202103
